FAERS Safety Report 4541605-7 (Version None)
Quarter: 2004Q4

REPORT INFORMATION
  Report Type: 
  Country: None (occurrence: None)
  Receive Date: 20041230
  Receipt Date: 20041122
  Transmission Date: 20050328
  Serious: Yes (Other)
  Sender: FDA-Public Use
  Company Number: PHFR2004GB04323

PATIENT
  Age: 73 Year
  Sex: Female

DRUGS (7)
  1. CO-AMOXICLAV [Suspect]
     Indication: UPPER RESPIRATORY TRACT INFECTION
     Dosage: 375MG/DAY
     Route: 048
     Dates: start: 20041127, end: 20041201
  2. BENDROFLUAZIDE [Concomitant]
     Indication: HYPERTENSION
     Dosage: 2.5MG/DAY
     Route: 048
  3. RANITIDINE [Concomitant]
     Indication: HIATUS HERNIA
     Dosage: UNK, UNK
     Route: 048
  4. PROCYCLIDINE HYDROCHLORIDE 2MG TAB [Concomitant]
     Indication: EXTRAPYRAMIDAL DISORDER
     Dosage: 2.5MG/DAY
     Route: 048
     Dates: start: 20041104
  5. CLOZARIL [Suspect]
     Indication: SCHIZOPHRENIA
     Dosage: UNK, UNK
     Route: 048
     Dates: start: 20041105
  6. CLOZARIL [Suspect]
     Dosage: UNK, UNK
  7. CLOZARIL [Suspect]
     Dosage: 175MG/DAY
     Route: 048

REACTIONS (10)
  - CONFUSIONAL STATE [None]
  - CREPITATIONS [None]
  - DIARRHOEA [None]
  - PLEUROTHOTONUS [None]
  - PNEUMONIA [None]
  - PYREXIA [None]
  - SOMNOLENCE [None]
  - UPPER RESPIRATORY TRACT INFECTION [None]
  - URINARY TRACT INFECTION [None]
  - VOMITING [None]
